FAERS Safety Report 25488037 (Version 1)
Quarter: 2025Q2

REPORT INFORMATION
  Report Type: Spontaneous
  Country: RO (occurrence: RO)
  Receive Date: 20250627
  Receipt Date: 20250627
  Transmission Date: 20250716
  Serious: Yes (Hospitalization)
  Sender: BAYER HEALTHCARE PHARMACEUTICALS INC.
  Company Number: RO-BAYER-2025A082830

PATIENT
  Age: 33 Year
  Sex: Female

DRUGS (5)
  1. MOXIFLOXACIN [Suspect]
     Active Substance: MOXIFLOXACIN
     Route: 048
  2. IMIPENEM [Concomitant]
     Active Substance: IMIPENEM
  3. LINEZOLID [Concomitant]
     Active Substance: LINEZOLID
  4. CASPOFUNGIN [Concomitant]
     Active Substance: CASPOFUNGIN
  5. ITRACONAZOLE [Concomitant]
     Active Substance: ITRACONAZOLE

REACTIONS (4)
  - Hepatic lesion [None]
  - Hepatic lesion [None]
  - Malaise [None]
  - Candida test positive [None]

NARRATIVE: CASE EVENT DATE: 20250201
